FAERS Safety Report 8362279 (Version 2)
Quarter: 2015Q2

REPORT INFORMATION
  Report Type: Report from Study
  Country: US (occurrence: US)
  Receive Date: 20120130
  Receipt Date: 20150409
  Transmission Date: 20150821
  Serious: Yes (Death)
  Sender: FDA-Public Use
  Company Number: US-ROCHE-1034365

PATIENT
  Sex: Male

DRUGS (6)
  1. ARANESP [Concomitant]
     Active Substance: DARBEPOETIN ALFA
     Dosage: 01/MAR/2005, 15/MAR/2005, 29/MAR/2005
     Route: 065
  2. ZOMETA [Concomitant]
     Active Substance: ZOLEDRONIC ACID
     Route: 065
  3. ZOMETA [Concomitant]
     Active Substance: ZOLEDRONIC ACID
     Dosage: 10/MAY/2005, 07/JUN/2005
     Route: 065
  4. ARANESP [Concomitant]
     Active Substance: DARBEPOETIN ALFA
     Dosage: RECEIVED ON 04/APR/2005, 18/JAN/2005, 15/FEB/2005, 12/APR/2005, 20/APR/2005, 10/MAY/2005, 07/JAN/200
     Route: 065
  5. ARANESP [Concomitant]
     Active Substance: DARBEPOETIN ALFA
     Dosage: 01/FEB/2005
     Route: 065
  6. AVASTIN [Suspect]
     Active Substance: BEVACIZUMAB
     Indication: RENAL CANCER
     Dosage: RECEIVED ON 4/JAN/2005, 18/JAN/2005, 1/FEB/2005, 15/FEB/2005, 01/MAR/2005, 15/MAR/2005, 29/MAR/2005,
     Route: 042

REACTIONS (3)
  - Off label use [Unknown]
  - Death [Fatal]
  - Back pain [Unknown]
